FAERS Safety Report 8233043-0 (Version None)
Quarter: 2012Q1

REPORT INFORMATION
  Report Type: 
  Country: None (occurrence: None)
  Receive Date: 20120326
  Receipt Date: 20120313
  Transmission Date: 20120608
  Serious: No
  Sender: FDA-Public Use
  Company Number: US-BIOGENIDEC-2012BI002868

PATIENT
  Age: 39 Year
  Sex: Female

DRUGS (1)
  1. TYSABRI [Suspect]
     Indication: MULTIPLE SCLEROSIS
     Route: 042
     Dates: start: 20111213, end: 20120101

REACTIONS (4)
  - MIGRAINE [None]
  - HEADACHE [None]
  - ARTHRALGIA [None]
  - DRUG SPECIFIC ANTIBODY PRESENT [None]
